FAERS Safety Report 6355519-3 (Version None)
Quarter: 2009Q3

REPORT INFORMATION
  Report Type: 
  Country: None (occurrence: None)
  Receive Date: 20090914
  Receipt Date: 20090911
  Transmission Date: 20100115
  Serious: Yes (Death, Hospitalization)
  Sender: FDA-Public Use
  Company Number: PHHY2009FR30791

PATIENT
  Sex: Male
  Weight: 68 kg

DRUGS (9)
  1. EXELON [Suspect]
     Indication: DEMENTIA ALZHEIMER'S TYPE
     Dosage: 4.6 MG, QD
     Route: 062
  2. EXELON [Suspect]
     Dosage: 9.5 MG, UNK
  3. EXELON [Suspect]
     Indication: DEMENTIA ALZHEIMER'S TYPE
     Dosage: 4.5 MG (3 MG + 1.5 MG), QD
     Route: 048
  4. CARTROL [Concomitant]
  5. XALATAN [Concomitant]
  6. RIVOTRIL [Concomitant]
     Dosage: 1 DF, DAILY
     Dates: start: 20090622
  7. SIMVASTATIN [Concomitant]
     Dosage: 1 DF, DAILY
  8. COTAREG [Concomitant]
     Dosage: 1 DF, DAILY
  9. PARIET [Concomitant]
     Dosage: 1 DF, DAILY

REACTIONS (4)
  - ABNORMAL BEHAVIOUR [None]
  - AGITATION [None]
  - DISEASE PROGRESSION [None]
  - DRUG DISPENSING ERROR [None]
